FAERS Safety Report 5765461-4 (Version None)
Quarter: 2008Q2

REPORT INFORMATION
  Report Type: 
  Country: None (occurrence: None)
  Receive Date: 20080611
  Receipt Date: 20080605
  Transmission Date: 20081010
  Serious: Yes (Other)
  Sender: FDA-Public Use
  Company Number: A0731495A

PATIENT
  Age: 93 Year
  Sex: Female

DRUGS (4)
  1. REQUIP [Suspect]
     Indication: RESTLESS LEGS SYNDROME
     Dosage: 1MG PER DAY
     Route: 048
     Dates: start: 20080601
  2. TEMAZEPAM [Concomitant]
  3. SYNTHROID [Concomitant]
  4. WATER PILL [Concomitant]

REACTIONS (11)
  - ABDOMINAL PAIN UPPER [None]
  - ARRHYTHMIA [None]
  - DEHYDRATION [None]
  - DRY MOUTH [None]
  - DYSPNOEA [None]
  - HALLUCINATION [None]
  - INITIAL INSOMNIA [None]
  - INTENTIONAL DRUG MISUSE [None]
  - NAUSEA [None]
  - SLEEP TALKING [None]
  - TREMOR [None]
